FAERS Safety Report 23330738 (Version 2)
Quarter: 2024Q1

REPORT INFORMATION
  Report Type: Spontaneous
  Country: US (occurrence: US)
  Receive Date: 20231222
  Receipt Date: 20240207
  Transmission Date: 20240410
  Serious: No
  Sender: FDA-Public Use
  Company Number: US-JNJFOC-20231180170

PATIENT
  Age: 8 Decade
  Sex: Female

DRUGS (2)
  1. WOMENS ROGAINE [Suspect]
     Active Substance: MINOXIDIL
     Indication: Alopecia
     Dosage: ABOUT 2 TABLESPOONS (MORNING AND NIGHT)
     Route: 061
  2. WOMENS ROGAINE [Suspect]
     Active Substance: MINOXIDIL
     Dosage: ONCE A DAY
     Route: 061

REACTIONS (2)
  - Overdose [Unknown]
  - Inappropriate schedule of product administration [Unknown]
